FAERS Safety Report 8543948-9 (Version None)
Quarter: 2012Q3

REPORT INFORMATION
  Report Type: 
  Country: None (occurrence: None)
  Receive Date: 20120727
  Receipt Date: 20120724
  Transmission Date: 20120928
  Serious: Yes (Hospitalization)
  Sender: FDA-Public Use
  Company Number: FR-AMGEN-FRASP2012045789

PATIENT
  Age: 82 Year
  Sex: Female

DRUGS (1)
  1. CINACALCET HYDROCHLORIDE [Suspect]
     Indication: HYPERPARATHYROIDISM PRIMARY
     Dosage: 30 MG, UNK
     Route: 048
     Dates: start: 20110922, end: 20111018

REACTIONS (6)
  - HYPOTHERMIA [None]
  - DYSPHAGIA [None]
  - HYPOTONIA [None]
  - DEPRESSED LEVEL OF CONSCIOUSNESS [None]
  - OPHTHALMOPLEGIA [None]
  - NAUSEA [None]
